FAERS Safety Report 9724751 (Version 1)
Quarter: 2013Q4

REPORT INFORMATION
  Report Type: Spontaneous
  Country: IT (occurrence: IT)
  Receive Date: 20131202
  Receipt Date: 20131202
  Transmission Date: 20140711
  Serious: Yes (Other)
  Sender: FDA-Public Use
  Company Number: IT-B.I. PHARMACEUTICALS,INC./RIDGEFIELD-2013-BI-39223IT

PATIENT
  Age: 74 Year
  Sex: Female

DRUGS (1)
  1. CATAPRESAN [Suspect]
     Indication: HYPERTENSION
     Dosage: 1.5 POSOLOGICAL UNITS DAILY
     Route: 048
     Dates: start: 20130728, end: 20130801

REACTIONS (3)
  - Head injury [Not Recovered/Not Resolved]
  - Syncope [Not Recovered/Not Resolved]
  - Wound [Not Recovered/Not Resolved]
